FAERS Safety Report 5981265-1 (Version None)
Quarter: 2008Q4

REPORT INFORMATION
  Report Type: 
  Country: None (occurrence: None)
  Receive Date: 20081128
  Receipt Date: 20081117
  Transmission Date: 20090506
  Serious: Yes (Other)
  Sender: FDA-Public Use
  Company Number: ADE2008-0379

PATIENT
  Age: 73 Year
  Sex: Male

DRUGS (3)
  1. SIMVASTATIN [Suspect]
  2. LANSOPRAZOLE [Suspect]
  3. GLYCYRRHIZA (HERBADULX REGOLA) [Suspect]
     Indication: LAXATIVE SUPPORTIVE CARE
     Dosage: 2 TABLETS DAILY

REACTIONS (2)
  - BLOOD UREA INCREASED [None]
  - RHABDOMYOLYSIS [None]
